FAERS Safety Report 12429250 (Version 2)
Quarter: 2016Q3

REPORT INFORMATION
  Report Type: Spontaneous
  Country: BR (occurrence: BR)
  Receive Date: 20160602
  Receipt Date: 20160706
  Transmission Date: 20161109
  Serious: Yes (Other)
  Sender: FDA-Public Use
  Company Number: BR-ASTRAZENECA-2016SE57621

PATIENT
  Age: 23428 Day
  Sex: Female

DRUGS (4)
  1. VITAMIN [Concomitant]
     Active Substance: VITAMINS
  2. EFFEXOR [Concomitant]
     Active Substance: VENLAFAXINE HYDROCHLORIDE
     Indication: DEPRESSION
     Dates: start: 201603
  3. SELOZOK [Suspect]
     Active Substance: METOPROLOL SUCCINATE
     Indication: HYPERTENSION
     Route: 048
     Dates: start: 20160505
  4. LORAX [Concomitant]
     Active Substance: LORAZEPAM
     Indication: INSOMNIA
     Dosage: DAILY
     Dates: start: 2008

REACTIONS (5)
  - Blood pressure increased [Recovered/Resolved]
  - Headache [Recovered/Resolved]
  - Drug ineffective [Recovered/Resolved]
  - Off label use [Not Recovered/Not Resolved]
  - Paraesthesia [Recovering/Resolving]

NARRATIVE: CASE EVENT DATE: 20160505
